FAERS Safety Report 17180378 (Version 1)
Quarter: 2019Q4

REPORT INFORMATION
  Report Type: Spontaneous
  Country: US (occurrence: US)
  Receive Date: 20191219
  Receipt Date: 20191219
  Transmission Date: 20200122
  Serious: No
  Sender: FDA-Public Use
  Company Number: US-UCBSA-103214

PATIENT
  Age: 50 Year
  Sex: Female
  Weight: 106.59 kg

DRUGS (2)
  1. CIMZIA [Suspect]
     Active Substance: CERTOLIZUMAB PEGOL
     Indication: RHEUMATOID ARTHRITIS
     Dosage: 400 MG, EV 4 WEEKS
     Route: 058
     Dates: start: 201310
  2. CIMZIA [Suspect]
     Active Substance: CERTOLIZUMAB PEGOL
     Dates: start: 20130928

REACTIONS (3)
  - Injection site pain [Not Recovered/Not Resolved]
  - Cough [Recovering/Resolving]
  - Injection site bruising [Not Recovered/Not Resolved]

NARRATIVE: CASE EVENT DATE: 20130928
